FAERS Safety Report 11585055 (Version 1)
Quarter: 2015Q4

REPORT INFORMATION
  Report Type: Spontaneous
  Country: US (occurrence: US)
  Receive Date: 20151001
  Receipt Date: 20151001
  Transmission Date: 20160304
  Serious: Yes (Other)
  Sender: FDA-Public Use
  Company Number: US-ASTRAZENECA-2015SE92574

PATIENT
  Sex: Female
  Weight: 89.4 kg

DRUGS (9)
  1. PULMICORT FLEXHALER [Suspect]
     Active Substance: BUDESONIDE
     Indication: CHRONIC OBSTRUCTIVE PULMONARY DISEASE
     Route: 055
  2. PULMICORT FLEXHALER [Suspect]
     Active Substance: BUDESONIDE
     Indication: ASTHMA
     Route: 055
  3. PULMICORT FLEXHALER [Suspect]
     Active Substance: BUDESONIDE
     Indication: BRONCHITIS
     Route: 055
  4. PULMICORT FLEXHALER [Suspect]
     Active Substance: BUDESONIDE
     Indication: CHRONIC OBSTRUCTIVE PULMONARY DISEASE
     Route: 055
  5. PULMICORT FLEXHALER [Suspect]
     Active Substance: BUDESONIDE
     Indication: ASTHMA
     Route: 055
  6. LANTUS [Concomitant]
     Active Substance: INSULIN GLARGINE
     Indication: DIABETES MELLITUS
     Dosage: 50 IN THE MORNING AND 50 IN THE EVENING
  7. PULMICORT FLEXHALER [Suspect]
     Active Substance: BUDESONIDE
     Indication: BRONCHITIS
     Route: 055
  8. PROAIR HFA [Concomitant]
     Active Substance: ALBUTEROL SULFATE
     Indication: DYSPNOEA
     Route: 055
  9. NOVALOG [Concomitant]
     Indication: DIABETES MELLITUS
     Dosage: AFTER MEALS

REACTIONS (6)
  - Hyperkeratosis [Unknown]
  - Dyspnoea [Unknown]
  - Haematochezia [Unknown]
  - Blindness [Unknown]
  - Keratoconus [Unknown]
  - Off label use [Unknown]
